FAERS Safety Report 22256497 (Version 1)
Quarter: 2023Q2

REPORT INFORMATION
  Report Type: Spontaneous
  Country: US (occurrence: US)
  Receive Date: 20230426
  Receipt Date: 20230426
  Transmission Date: 20230722
  Serious: No
  Sender: FDA-Public Use
  Company Number: US-Fresenius Medical Care Renal Therapies Group-FMC-2304-000397

PATIENT
  Sex: Male

DRUGS (1)
  1. DELFLEX [Suspect]
     Active Substance: CALCIUM CHLORIDE\DEXTROSE\MAGNESIUM CHLORIDE\SODIUM CHLORIDE\SODIUM LACTATE
     Indication: End stage renal disease
     Dosage: CCPD / CYCLE BASED; FILLS = 4; FILL VOLUME = 1800 ML; LAST FILL VOLUME = 0ML; TOTAL VOLUME = 7200 ML
     Route: 033

REACTIONS (2)
  - Discomfort [Unknown]
  - Dyspnoea [Unknown]
